FAERS Safety Report 7061038-1 (Version None)
Quarter: 2010Q4

REPORT INFORMATION
  Report Type: 
  Country: None (occurrence: None)
  Receive Date: 20101026
  Receipt Date: 20101019
  Transmission Date: 20110411
  Serious: Yes (Death, Hospitalization)
  Sender: FDA-Public Use
  Company Number: CH-PFIZER INC-2010132503

PATIENT
  Sex: Male

DRUGS (2)
  1. SORTIS [Suspect]
     Dosage: UNK
  2. NORFLOXACIN [Suspect]
     Dosage: UNK

REACTIONS (2)
  - DEATH [None]
  - RHABDOMYOLYSIS [None]
